FAERS Safety Report 8740377 (Version 6)
Quarter: 2014Q4

REPORT INFORMATION
  Report Type: Spontaneous
  Country: US (occurrence: US)
  Receive Date: 20120823
  Receipt Date: 20141010
  Transmission Date: 20150529
  Serious: No
  Sender: FDA-Public Use
  Company Number: US-009507513-1208USA004340

PATIENT
  Sex: Male

DRUGS (1)
  1. PROPECIA [Suspect]
     Active Substance: FINASTERIDE
     Indication: ANDROGENETIC ALOPECIA
     Dosage: 1 MG, QD
     Route: 048
     Dates: start: 20051229, end: 20101028

REACTIONS (6)
  - Erectile dysfunction [Unknown]
  - Cognitive disorder [Not Recovered/Not Resolved]
  - Nephrolithiasis [Unknown]
  - Hypogonadism [Unknown]
  - Sexual dysfunction [Unknown]
  - Libido decreased [Unknown]

NARRATIVE: CASE EVENT DATE: 2008
